FAERS Safety Report 7488543-8 (Version None)
Quarter: 2011Q2

REPORT INFORMATION
  Report Type: 
  Country: None (occurrence: None)
  Receive Date: 20110518
  Receipt Date: 20100527
  Transmission Date: 20111010
  Serious: Yes (Other)
  Sender: FDA-Public Use
  Company Number: DE-GENENTECH-318601

PATIENT
  Age: 78 Year
  Sex: Female

DRUGS (2)
  1. ANESTHETIC NOS [Concomitant]
     Indication: PRODUCT USED FOR UNKNOWN INDICATION
  2. LUCENTIS [Suspect]
     Indication: AGE-RELATED MACULAR DEGENERATION
     Route: 031

REACTIONS (8)
  - VISUAL ACUITY REDUCED [None]
  - DRY EYE [None]
  - VISUAL IMPAIRMENT [None]
  - EYE BURNS [None]
  - DEPRESSION [None]
  - MACULAR OEDEMA [None]
  - CATARACT [None]
  - EYE HAEMORRHAGE [None]
